FAERS Safety Report 10381768 (Version 1)
Quarter: 2014Q3

REPORT INFORMATION
  Report Type: Spontaneous
  Country: US (occurrence: US)
  Receive Date: 20140813
  Receipt Date: 20140813
  Transmission Date: 20150326
  Serious: Yes (Other)
  Sender: FDA-Public Use
  Company Number: 2014SP002489

PATIENT
  Sex: Male

DRUGS (2)
  1. LATUDA [Suspect]
     Active Substance: LURASIDONE HYDROCHLORIDE
     Route: 048
  2. LATUDA [Suspect]
     Active Substance: LURASIDONE HYDROCHLORIDE
     Route: 048

REACTIONS (13)
  - Generalised tonic-clonic seizure [Unknown]
  - Insomnia [Unknown]
  - Psychomotor hyperactivity [Unknown]
  - Anxiety [Unknown]
  - Logorrhoea [Unknown]
  - Hypertension [Unknown]
  - Drug ineffective [Unknown]
  - Irritability [Unknown]
  - Agitation [Unknown]
  - Mania [Unknown]
  - Panic attack [Unknown]
  - White blood cell count increased [Unknown]
  - Restlessness [Unknown]
